FAERS Safety Report 15203747 (Version 1)
Quarter: 2018Q3

REPORT INFORMATION
  Report Type: Report from Study
  Country: US (occurrence: US)
  Receive Date: 20180726
  Receipt Date: 20180726
  Transmission Date: 20181010
  Serious: Yes (Other)
  Sender: FDA-Public Use
  Company Number: US-GILEAD-2018-0351502

PATIENT
  Age: 58 Year
  Sex: Female

DRUGS (5)
  1. ALLOPURINOL. [Concomitant]
     Active Substance: ALLOPURINOL
     Route: 065
  2. PROCHLORPERAZINE. [Concomitant]
     Active Substance: PROCHLORPERAZINE
     Route: 065
  3. FERROUS SULFATE. [Concomitant]
     Active Substance: FERROUS SULFATE
     Route: 065
  4. IDELALISIB [Suspect]
     Active Substance: IDELALISIB
     Indication: CHRONIC LYMPHOCYTIC LEUKAEMIA
     Dosage: 150 MG, BID
     Route: 065
     Dates: start: 20170809, end: 20180704
  5. TYLENOL [Concomitant]
     Active Substance: ACETAMINOPHEN
     Route: 065

REACTIONS (1)
  - Disease progression [Unknown]
